FAERS Safety Report 8238962-7 (Version None)
Quarter: 2012Q1

REPORT INFORMATION
  Report Type: 
  Country: None (occurrence: None)
  Receive Date: 20120327
  Receipt Date: 20120320
  Transmission Date: 20120608
  Serious: Yes (Hospitalization, Other)
  Sender: FDA-Public Use
  Company Number: FR-ASTRAZENECA-2012SE16216

PATIENT
  Age: 681 Month
  Sex: Female

DRUGS (3)
  1. FASLODEX [Suspect]
     Indication: BREAST CANCER METASTATIC
     Route: 030
     Dates: start: 20120120, end: 20120120
  2. FASLODEX [Suspect]
     Route: 030
     Dates: start: 20120220, end: 20120220
  3. FASLODEX [Suspect]
     Route: 030
     Dates: start: 20120206, end: 20120206

REACTIONS (1)
  - METASTATIC NEOPLASM [None]
